FAERS Safety Report 10648977 (Version 2)
Quarter: 2014Q4

REPORT INFORMATION
  Report Type: Spontaneous
  Country: IN (occurrence: IN)
  Receive Date: 20141212
  Receipt Date: 20141230
  Transmission Date: 20150529
  Serious: Yes (Life-Threatening, Hospitalization, Other)
  Sender: FDA-Public Use
  Company Number: IN-BAYER-2014-180255

PATIENT
  Age: 51 Year
  Sex: Male

DRUGS (5)
  1. NEXAVAR [Suspect]
     Active Substance: SORAFENIB
     Indication: GASTROINTESTINAL STROMAL TUMOUR
     Dosage: DAILY DOSE 400 MG
     Route: 048
     Dates: start: 201404, end: 2014
  2. NEXAVAR [Suspect]
     Active Substance: SORAFENIB
     Indication: METASTASES TO LIVER
     Dosage: DAILY DOSE 600 MG
     Dates: start: 201406
  3. NEXAVAR [Suspect]
     Active Substance: SORAFENIB
     Indication: GASTROINTESTINAL STROMAL TUMOUR
     Dosage: DAILY DOSE 400 MG
     Dates: start: 201407
  4. NEXAVAR [Suspect]
     Active Substance: SORAFENIB
     Indication: GASTROINTESTINAL STROMAL TUMOUR
     Dosage: UNK
     Dates: start: 20141213
  5. NEXAVAR [Suspect]
     Active Substance: SORAFENIB
     Indication: GASTROINTESTINAL STROMAL TUMOUR
     Dosage: DAILY DOSE 800 MG
     Dates: start: 201408, end: 20141030

REACTIONS (25)
  - Cardiac arrest [Recovering/Resolving]
  - Loss of consciousness [None]
  - Product use issue [None]
  - Dyskinesia [None]
  - Myocardial infarction [Recovering/Resolving]
  - Coronary artery disease [Recovering/Resolving]
  - Cardiac disorder [Recovering/Resolving]
  - Malaria [Unknown]
  - Arrhythmia [Recovering/Resolving]
  - Discomfort [Recovered/Resolved with Sequelae]
  - Palmar-plantar erythrodysaesthesia syndrome [Recovered/Resolved]
  - Coronary artery dilatation [Recovering/Resolving]
  - Urinary tract infection [Unknown]
  - Diabetes mellitus [Unknown]
  - Hypocalcaemia [Recovered/Resolved]
  - Anaemia [Not Recovered/Not Resolved]
  - Renal impairment [Recovered/Resolved]
  - Mitral valve incompetence [Recovering/Resolving]
  - Sinus tachycardia [Recovering/Resolving]
  - Left ventricular dysfunction [Recovering/Resolving]
  - Seizure [None]
  - Pyrexia [Recovered/Resolved]
  - Vomiting [Recovered/Resolved]
  - Hypokalaemia [Recovered/Resolved]
  - Rectal haemorrhage [Recovered/Resolved]

NARRATIVE: CASE EVENT DATE: 2014
